FAERS Safety Report 23847840 (Version 3)
Quarter: 2024Q2

REPORT INFORMATION
  Report Type: Spontaneous
  Country: US (occurrence: US)
  Receive Date: 20240513
  Receipt Date: 20240624
  Transmission Date: 20240716
  Serious: Yes (Hospitalization, Other)
  Sender: FDA-Public Use
  Company Number: US-GLAXOSMITHKLINE-US2024058518

PATIENT

DRUGS (2)
  1. ZEJULA [Suspect]
     Active Substance: NIRAPARIB
     Indication: Ovarian cancer
     Dosage: 300 MG, QD
     Route: 048
     Dates: start: 20240420
  2. ZEJULA [Suspect]
     Active Substance: NIRAPARIB
     Dosage: 200 MG, QD
     Route: 048

REACTIONS (28)
  - Psychotic disorder [Unknown]
  - Loss of consciousness [Unknown]
  - Stress [Unknown]
  - Posterior reversible encephalopathy syndrome [Unknown]
  - Altered state of consciousness [Not Recovered/Not Resolved]
  - Seizure [Unknown]
  - Insomnia [Not Recovered/Not Resolved]
  - Dyspnoea [Unknown]
  - Blood pressure increased [Not Recovered/Not Resolved]
  - Heart rate increased [Not Recovered/Not Resolved]
  - Headache [Not Recovered/Not Resolved]
  - Dizziness [Unknown]
  - Visual impairment [Unknown]
  - Confusional state [Unknown]
  - Auditory disorder [Unknown]
  - Petechiae [Unknown]
  - Anxiety [Unknown]
  - Haemoglobin decreased [Unknown]
  - Haematocrit decreased [Unknown]
  - Platelet count decreased [Unknown]
  - Blood magnesium decreased [Unknown]
  - Ear haemorrhage [Unknown]
  - Epistaxis [Unknown]
  - Mouth haemorrhage [Unknown]
  - Restlessness [Unknown]
  - Agitation [Not Recovered/Not Resolved]
  - Pain [Unknown]
  - Hypertension [Not Recovered/Not Resolved]
